FAERS Safety Report 14635326 (Version 3)
Quarter: 2018Q3

REPORT INFORMATION
  Report Type: Spontaneous
  Country: US (occurrence: US)
  Receive Date: 20180314
  Receipt Date: 20180718
  Transmission Date: 20181010
  Serious: Yes (Hospitalization, Other)
  Sender: FDA-Public Use
  Company Number: US-PFIZER INC-2018102735

PATIENT
  Age: 60 Year
  Sex: Male
  Weight: 91.63 kg

DRUGS (7)
  1. LIPITOR [Suspect]
     Active Substance: ATORVASTATIN CALCIUM
     Dosage: 80 MG, ONCE A DAY
  2. BABY ASPIRIN [Concomitant]
     Active Substance: ASPIRIN
     Dosage: 81 MG, ONCE A DAY
     Route: 048
  3. LIPITOR [Suspect]
     Active Substance: ATORVASTATIN CALCIUM
     Indication: BLOOD CHOLESTEROL ABNORMAL
     Dosage: 20 MG, ONCE A DAY (IN THE AM)
     Route: 048
     Dates: start: 1996
  4. CARVEDILOL. [Concomitant]
     Active Substance: CARVEDILOL
     Dosage: 6.5 MG, 2 TIMES A DAY
     Route: 048
  5. CARVEDILOL. [Concomitant]
     Active Substance: CARVEDILOL
     Dosage: 12.5 MG, UNK
  6. BABY ASPIRIN [Concomitant]
     Active Substance: ASPIRIN
     Dosage: 325 MG, UNK
  7. VALSARTAN. [Concomitant]
     Active Substance: VALSARTAN
     Dosage: 80 MG, ONCE A DAY
     Route: 048
     Dates: start: 2017

REACTIONS (8)
  - Myocardial infarction [Recovering/Resolving]
  - Disease recurrence [Recovering/Resolving]
  - Nasopharyngitis [Unknown]
  - Ejection fraction decreased [Unknown]
  - Cough [Unknown]
  - Pain [Unknown]
  - Aphonia [Unknown]
  - Pain in extremity [Unknown]

NARRATIVE: CASE EVENT DATE: 20180302
